FAERS Safety Report 8484098-X (Version None)
Quarter: 2012Q2

REPORT INFORMATION
  Report Type: 
  Country: None (occurrence: None)
  Receive Date: 20120627
  Receipt Date: 20120627
  Transmission Date: 20120825
  Serious: Yes (Hospitalization)
  Sender: FDA-Public Use
  Company Number: None

PATIENT
  Sex: Female
  Weight: 90 kg

DRUGS (1)
  1. INTRON A [Suspect]
     Dosage: 621.84 MU
     Dates: end: 20120604

REACTIONS (7)
  - FEELING ABNORMAL [None]
  - ASTHENIA [None]
  - VOMITING [None]
  - URINARY TRACT INFECTION [None]
  - DEHYDRATION [None]
  - HYPOPHAGIA [None]
  - NAUSEA [None]
